FAERS Safety Report 16077848 (Version 1)
Quarter: 2019Q1

REPORT INFORMATION
  Report Type: Spontaneous
  Country: SE (occurrence: SE)
  Receive Date: 20190315
  Receipt Date: 20190315
  Transmission Date: 20190418
  Serious: Yes (Life-Threatening, Hospitalization, Disabling, Other)
  Sender: FDA-Public Use
  Company Number: SE-AMGEN-SWESP2019039401

PATIENT
  Age: 62 Year
  Sex: Female

DRUGS (1)
  1. ENBREL [Suspect]
     Active Substance: ETANERCEPT
     Indication: RHEUMATOID ARTHRITIS
     Dosage: 50 MG, UNK
     Route: 065
     Dates: start: 20180820, end: 20190208

REACTIONS (2)
  - Squamous cell carcinoma [Not Recovered/Not Resolved]
  - Vulval cancer [Not Recovered/Not Resolved]

NARRATIVE: CASE EVENT DATE: 20181214
